FAERS Safety Report 19491240 (Version 5)
Quarter: 2022Q3

REPORT INFORMATION
  Report Type: Other
  Country: US (occurrence: None)
  Receive Date: 20210705
  Receipt Date: 20220807
  Transmission Date: 20221026
  Serious: Yes (Other)
  Sender: FDA-Public Use
  Company Number: US-ROCHE-2494365

PATIENT
  Sex: Female
  Weight: 108.96 kg

DRUGS (36)
  1. ACTEMRA [Suspect]
     Active Substance: TOCILIZUMAB
     Indication: Iridocyclitis
     Dosage: INJECT 162 MG/ 0.9 ML SUBCUTANEOUSLY EVERY WEEK
     Route: 058
  2. ACTEMRA [Suspect]
     Active Substance: TOCILIZUMAB
  3. ACTEMRA [Suspect]
     Active Substance: TOCILIZUMAB
  4. ACTEMRA [Suspect]
     Active Substance: TOCILIZUMAB
     Indication: Iridocyclitis
     Route: 058
  5. ACTEMRA [Suspect]
     Active Substance: TOCILIZUMAB
  6. ACTEMRA [Suspect]
     Active Substance: TOCILIZUMAB
  7. ACTEMRA [Suspect]
     Active Substance: TOCILIZUMAB
     Indication: Macular degeneration
  8. ACTEMRA [Suspect]
     Active Substance: TOCILIZUMAB
  9. ACTEMRA [Suspect]
     Active Substance: TOCILIZUMAB
  10. ACTEMRA [Suspect]
     Active Substance: TOCILIZUMAB
     Indication: SARS-CoV-2 test positive
  11. ACTEMRA [Suspect]
     Active Substance: TOCILIZUMAB
  12. ACTEMRA [Suspect]
     Active Substance: TOCILIZUMAB
  13. ACTEMRA [Suspect]
     Active Substance: TOCILIZUMAB
     Indication: Iritis
  14. ACTEMRA [Suspect]
     Active Substance: TOCILIZUMAB
  15. ACTEMRA [Suspect]
     Active Substance: TOCILIZUMAB
  16. ACTEMRA [Suspect]
     Active Substance: TOCILIZUMAB
     Indication: Iridocyclitis
     Route: 042
  17. ACTEMRA [Suspect]
     Active Substance: TOCILIZUMAB
     Indication: Macular degeneration
  18. ACTEMRA [Suspect]
     Active Substance: TOCILIZUMAB
     Indication: Iridocyclitis
  19. ACTEMRA [Suspect]
     Active Substance: TOCILIZUMAB
     Indication: SARS-CoV-2 test positive
  20. ACTEMRA [Suspect]
     Active Substance: TOCILIZUMAB
     Indication: SARS-CoV-2 test positive
     Route: 058
  21. ACTEMRA [Suspect]
     Active Substance: TOCILIZUMAB
  22. ACTEMRA [Suspect]
     Active Substance: TOCILIZUMAB
     Indication: Iridocyclitis
  23. ACTEMRA [Suspect]
     Active Substance: TOCILIZUMAB
  24. ACTEMRA [Suspect]
     Active Substance: TOCILIZUMAB
     Indication: Iridocyclitis
  25. ACTEMRA [Suspect]
     Active Substance: TOCILIZUMAB
  26. ACTEMRA [Suspect]
     Active Substance: TOCILIZUMAB
     Indication: Macular degeneration
  27. ACTEMRA [Suspect]
     Active Substance: TOCILIZUMAB
  28. PLAQUENIL [Concomitant]
     Active Substance: HYDROXYCHLOROQUINE SULFATE
     Indication: Product used for unknown indication
     Dates: start: 1999
  29. KETOROLAC [Concomitant]
     Active Substance: KETOROLAC TROMETHAMINE
     Indication: Product used for unknown indication
     Dosage: QID OU (BOTH EYES)
     Route: 047
  30. KETOROLAC [Concomitant]
     Active Substance: KETOROLAC TROMETHAMINE
     Dosage: QID
  31. HUMIRA [Concomitant]
     Active Substance: ADALIMUMAB
     Indication: Product used for unknown indication
  32. HUMIRA [Concomitant]
     Active Substance: ADALIMUMAB
     Dates: start: 2018
  33. TIMOLOL [Concomitant]
     Active Substance: TIMOLOL
     Indication: Product used for unknown indication
     Dosage: BID OU (BOTH EYES)
     Route: 047
  34. ATROPINE [Concomitant]
     Active Substance: ATROPINE
     Indication: Product used for unknown indication
     Dosage: QD OU (BOTH EYES)
     Route: 047
  35. ATROPINE [Concomitant]
     Active Substance: ATROPINE
  36. METHOTREXATE [Concomitant]
     Active Substance: METHOTREXATE
     Dosage: 8 TAB PO WEEKLY
     Route: 048

REACTIONS (7)
  - Seizure [Unknown]
  - COVID-19 [Unknown]
  - Off label use [Unknown]
  - Fall [Unknown]
  - Contusion [Unknown]
  - Visual impairment [Unknown]
  - Obstructive sleep apnoea syndrome [Unknown]
